FAERS Safety Report 9917459 (Version 2)
Quarter: 2014Q2

REPORT INFORMATION
  Report Type: Spontaneous
  Country: US (occurrence: US)
  Receive Date: 20140221
  Receipt Date: 20140409
  Transmission Date: 20141212
  Serious: No
  Sender: FDA-Public Use
  Company Number: US-PFIZER INC-2014047760

PATIENT
  Age: 54 Year
  Sex: Female
  Weight: 61.22 kg

DRUGS (2)
  1. ADVIL PM [Suspect]
     Indication: HEADACHE
     Dosage: 200/25MG, TWO TIMES A DAY
     Dates: start: 20140215, end: 20140217
  2. ADVIL PM [Suspect]
     Indication: PAIN

REACTIONS (1)
  - Drug ineffective [Unknown]
